FAERS Safety Report 19300908 (Version 5)
Quarter: 2021Q4

REPORT INFORMATION
  Report Type: Report from Study
  Country: JP (occurrence: JP)
  Receive Date: 20210525
  Receipt Date: 20211112
  Transmission Date: 20220303
  Serious: Yes (Hospitalization)
  Sender: FDA-Public Use
  Company Number: JP-CELGENE-JPN-20210504484

PATIENT
  Age: 72 Year
  Sex: Male

DRUGS (80)
  1. AZACITIDINE [Suspect]
     Active Substance: AZACITIDINE
     Indication: Chronic myelomonocytic leukaemia
     Route: 058
     Dates: start: 20190729, end: 20210113
  2. AZACITIDINE [Suspect]
     Active Substance: AZACITIDINE
     Route: 042
     Dates: start: 20210201, end: 20210510
  3. PEVONEDISTAT [Suspect]
     Active Substance: PEVONEDISTAT
     Indication: Chronic myelomonocytic leukaemia
     Dosage: 250 MILLILITER
     Route: 041
     Dates: start: 20190729, end: 20210510
  4. PEVONEDISTAT [Suspect]
     Active Substance: PEVONEDISTAT
     Route: 065
     Dates: start: 20210506
  5. Azunol [Concomitant]
     Indication: Product used for unknown indication
     Route: 061
     Dates: start: 20190808, end: 20190812
  6. Azunol [Concomitant]
     Route: 061
     Dates: start: 20190830, end: 20190902
  7. Azunol [Concomitant]
     Route: 061
     Dates: start: 20190925, end: 20190925
  8. Azunol [Concomitant]
     Route: 061
     Dates: start: 20191002, end: 20191004
  9. Azunol [Concomitant]
     Route: 061
     Dates: start: 20191107, end: 20191111
  10. Azunol [Concomitant]
     Route: 061
     Dates: start: 20191202, end: 20191203
  11. Azunol [Concomitant]
     Route: 061
     Dates: start: 20200116, end: 20200119
  12. Azunol [Concomitant]
     Route: 061
     Dates: start: 20201015, end: 20201016
  13. Azunol [Concomitant]
     Route: 061
     Dates: start: 20210305, end: 20210308
  14. MAGNESIUM OXIDE [Concomitant]
     Active Substance: MAGNESIUM OXIDE
     Indication: Product used for unknown indication
     Route: 065
     Dates: start: 20190731, end: 20190809
  15. MAGNESIUM OXIDE [Concomitant]
     Active Substance: MAGNESIUM OXIDE
     Route: 065
     Dates: start: 20190824, end: 20190824
  16. MAGNESIUM OXIDE [Concomitant]
     Active Substance: MAGNESIUM OXIDE
     Route: 065
     Dates: start: 20190827, end: 20190907
  17. MAGNESIUM OXIDE [Concomitant]
     Active Substance: MAGNESIUM OXIDE
     Route: 065
     Dates: start: 20191001, end: 20191001
  18. MAGNESIUM OXIDE [Concomitant]
     Active Substance: MAGNESIUM OXIDE
     Route: 065
     Dates: start: 20191003, end: 20191012
  19. MAGNESIUM OXIDE [Concomitant]
     Active Substance: MAGNESIUM OXIDE
     Route: 065
     Dates: start: 20191031, end: 20191102
  20. MAGNESIUM OXIDE [Concomitant]
     Active Substance: MAGNESIUM OXIDE
     Route: 065
     Dates: start: 20191107, end: 20191111
  21. MAGNESIUM OXIDE [Concomitant]
     Active Substance: MAGNESIUM OXIDE
     Route: 065
     Dates: start: 20191201, end: 20191209
  22. MAGNESIUM OXIDE [Concomitant]
     Active Substance: MAGNESIUM OXIDE
     Route: 065
     Dates: start: 20200109, end: 20200119
  23. MAGNESIUM OXIDE [Concomitant]
     Active Substance: MAGNESIUM OXIDE
     Route: 065
     Dates: start: 20200207, end: 20200216
  24. MAGNESIUM OXIDE [Concomitant]
     Active Substance: MAGNESIUM OXIDE
     Route: 065
     Dates: start: 20200306, end: 20200314
  25. MAGNESIUM OXIDE [Concomitant]
     Active Substance: MAGNESIUM OXIDE
     Route: 065
     Dates: start: 20200404, end: 20200412
  26. MAGNESIUM OXIDE [Concomitant]
     Active Substance: MAGNESIUM OXIDE
     Route: 065
     Dates: start: 20200519, end: 20200519
  27. MAGNESIUM OXIDE [Concomitant]
     Active Substance: MAGNESIUM OXIDE
     Route: 065
     Dates: start: 20200610, end: 20200612
  28. MAGNESIUM OXIDE [Concomitant]
     Active Substance: MAGNESIUM OXIDE
     Route: 065
     Dates: start: 20200706, end: 20200714
  29. MAGNESIUM OXIDE [Concomitant]
     Active Substance: MAGNESIUM OXIDE
     Route: 065
     Dates: start: 20200813, end: 20200821
  30. MAGNESIUM OXIDE [Concomitant]
     Active Substance: MAGNESIUM OXIDE
     Route: 065
     Dates: start: 20200910, end: 20200918
  31. MAGNESIUM OXIDE [Concomitant]
     Active Substance: MAGNESIUM OXIDE
     Route: 065
     Dates: start: 20201008, end: 20201016
  32. MAGNESIUM OXIDE [Concomitant]
     Active Substance: MAGNESIUM OXIDE
     Route: 065
     Dates: start: 20201203, end: 20210112
  33. MAGNESIUM OXIDE [Concomitant]
     Active Substance: MAGNESIUM OXIDE
     Route: 065
     Dates: start: 20210113
  34. ACETAMINOPHEN [Concomitant]
     Active Substance: ACETAMINOPHEN
     Indication: Product used for unknown indication
     Route: 065
     Dates: start: 20190805, end: 20191017
  35. ACETAMINOPHEN [Concomitant]
     Active Substance: ACETAMINOPHEN
     Route: 065
     Dates: start: 20210212, end: 20210227
  36. BUTLER F [Concomitant]
     Indication: Product used for unknown indication
     Route: 065
     Dates: start: 20190819, end: 20191003
  37. VALACYCLOVIR HYDROCHLORIDE [Concomitant]
     Active Substance: VALACYCLOVIR HYDROCHLORIDE
     Indication: Product used for unknown indication
     Route: 065
     Dates: start: 20190930, end: 20191001
  38. DIFLUPREDNATE [Concomitant]
     Active Substance: DIFLUPREDNATE
     Indication: Product used for unknown indication
     Route: 065
     Dates: start: 20191001, end: 20191004
  39. DIBASIC SODIUM PHOSPHATE HYDRATE/SODIUM DIHYDROGEN PHOSPHATE DIHYDRATE [Concomitant]
     Indication: Product used for unknown indication
     Route: 065
     Dates: start: 20191028, end: 20191028
  40. DIBASIC SODIUM PHOSPHATE HYDRATE/SODIUM DIHYDROGEN PHOSPHATE DIHYDRATE [Concomitant]
     Route: 065
     Dates: start: 20191202, end: 20191202
  41. DIBASIC SODIUM PHOSPHATE HYDRATE/SODIUM DIHYDROGEN PHOSPHATE DIHYDRATE [Concomitant]
     Route: 065
     Dates: start: 20200130, end: 20200130
  42. DIBASIC SODIUM PHOSPHATE HYDRATE/SODIUM DIHYDROGEN PHOSPHATE DIHYDRATE [Concomitant]
     Route: 065
     Dates: start: 20200511, end: 20200511
  43. METOCLOPRAMIDE HYDROCHLORIDE [Concomitant]
     Active Substance: METOCLOPRAMIDE HYDROCHLORIDE
     Indication: Product used for unknown indication
     Route: 065
     Dates: start: 20191201, end: 20191201
  44. CALCIUM CHLORIDE\POTASSIUM CHLORIDE\SODIUM ACETATE\SODIUM CHLORIDE [Concomitant]
     Active Substance: CALCIUM CHLORIDE\POTASSIUM CHLORIDE\SODIUM ACETATE\SODIUM CHLORIDE
     Indication: Product used for unknown indication
     Route: 065
     Dates: start: 20191201, end: 20191201
  45. INFLUENZA VIRUS VACCINE [Concomitant]
     Active Substance: INFLUENZA VIRUS VACCINE
     Indication: Product used for unknown indication
     Route: 065
     Dates: start: 20191024, end: 20191024
  46. AMLODIPINE BESYLATE [Concomitant]
     Active Substance: AMLODIPINE BESYLATE
     Indication: Product used for unknown indication
     Route: 065
     Dates: start: 20191225, end: 20200116
  47. AMLODIPINE BESYLATE [Concomitant]
     Active Substance: AMLODIPINE BESYLATE
     Route: 065
     Dates: start: 20200117
  48. ORONINE [Concomitant]
     Indication: Product used for unknown indication
     Route: 065
     Dates: start: 20200506, end: 20200510
  49. SENNOSIDES [Concomitant]
     Active Substance: SENNOSIDES
     Indication: Product used for unknown indication
     Route: 065
     Dates: start: 20200519, end: 20200519
  50. SENNOSIDES [Concomitant]
     Active Substance: SENNOSIDES
     Route: 065
     Dates: start: 20200610, end: 20200611
  51. LANSOPRAZOLE [Concomitant]
     Active Substance: LANSOPRAZOLE
     Indication: Product used for unknown indication
     Route: 065
     Dates: start: 20200611, end: 20200612
  52. PROTEASE [Concomitant]
     Active Substance: PROTEASE
     Indication: Product used for unknown indication
     Route: 065
     Dates: start: 20200722, end: 20200722
  53. DIMETHICONE [Concomitant]
     Active Substance: DIMETHICONE
     Indication: Product used for unknown indication
     Route: 065
     Dates: start: 20200722, end: 20200722
  54. SODIUM BICARBONATE [Concomitant]
     Active Substance: SODIUM BICARBONATE
     Indication: Product used for unknown indication
     Route: 065
     Dates: start: 20200722, end: 20200722
  55. LIDOCAINE HYDROCHLORIDE [Concomitant]
     Active Substance: LIDOCAINE HYDROCHLORIDE
     Indication: Product used for unknown indication
     Route: 065
     Dates: start: 20200722, end: 20200722
  56. LIDOCAINE HYDROCHLORIDE [Concomitant]
     Active Substance: LIDOCAINE HYDROCHLORIDE
     Route: 065
     Dates: start: 20210326, end: 20210326
  57. EFINACONAZOLE [Concomitant]
     Active Substance: EFINACONAZOLE
     Indication: Product used for unknown indication
     Route: 065
     Dates: start: 20200824
  58. LULICONAZOLE [Concomitant]
     Active Substance: LULICONAZOLE
     Indication: Product used for unknown indication
     Route: 065
     Dates: start: 20200824
  59. LOXOPROFEN SODIUM DIHYDRATE [Concomitant]
     Active Substance: LOXOPROFEN SODIUM DIHYDRATE
     Indication: Product used for unknown indication
     Route: 065
     Dates: start: 20200829, end: 20200829
  60. LOXOPROFEN SODIUM DIHYDRATE [Concomitant]
     Active Substance: LOXOPROFEN SODIUM DIHYDRATE
     Route: 065
     Dates: start: 20201016, end: 20201021
  61. LOXOPROFEN SODIUM DIHYDRATE [Concomitant]
     Active Substance: LOXOPROFEN SODIUM DIHYDRATE
     Route: 065
     Dates: start: 20201208, end: 20201208
  62. LOXOPROFEN SODIUM DIHYDRATE [Concomitant]
     Active Substance: LOXOPROFEN SODIUM DIHYDRATE
     Route: 065
     Dates: start: 20210219, end: 20210312
  63. LOXOPROFEN SODIUM DIHYDRATE [Concomitant]
     Active Substance: LOXOPROFEN SODIUM DIHYDRATE
     Route: 065
     Dates: start: 20210406
  64. LOXOPROFEN SODIUM DIHYDRATE [Concomitant]
     Active Substance: LOXOPROFEN SODIUM DIHYDRATE
     Route: 065
     Dates: start: 20201127, end: 20201217
  65. LOXOPROFEN SODIUM DIHYDRATE [Concomitant]
     Active Substance: LOXOPROFEN SODIUM DIHYDRATE
     Route: 065
     Dates: start: 20210406
  66. AMOXICILLIN [Concomitant]
     Active Substance: AMOXICILLIN
     Indication: Product used for unknown indication
     Route: 065
     Dates: start: 20200829, end: 20200829
  67. AMOXICILLIN [Concomitant]
     Active Substance: AMOXICILLIN
     Route: 065
     Dates: start: 20201016, end: 20201021
  68. AMOXICILLIN [Concomitant]
     Active Substance: AMOXICILLIN
     Route: 065
     Dates: start: 20201223, end: 20210105
  69. INFLUENZA VIRUS VACCINE [Concomitant]
     Active Substance: INFLUENZA VIRUS VACCINE
     Indication: Product used for unknown indication
     Route: 065
     Dates: start: 20201013, end: 20201013
  70. OXYTETRACYCLINE HYDROCHLORIDE [Concomitant]
     Active Substance: OXYTETRACYCLINE HYDROCHLORIDE
     Indication: Product used for unknown indication
     Route: 065
     Dates: start: 20201125, end: 20201125
  71. ESFLURBIPROFEN [Concomitant]
     Active Substance: ESFLURBIPROFEN
     Indication: Product used for unknown indication
     Route: 065
     Dates: start: 20201218
  72. REBAMIPIDE [Concomitant]
     Active Substance: REBAMIPIDE
     Indication: Product used for unknown indication
     Route: 065
     Dates: start: 20210219, end: 20210312
  73. REBAMIPIDE [Concomitant]
     Active Substance: REBAMIPIDE
     Route: 065
     Dates: start: 20210406
  74. DULOXETINE HYDROCHLORIDE [Concomitant]
     Active Substance: DULOXETINE HYDROCHLORIDE
     Indication: Product used for unknown indication
     Route: 065
     Dates: start: 20210312, end: 20210330
  75. MOVIPREP [Concomitant]
     Active Substance: ASCORBIC ACID\POLYETHYLENE GLYCOL 3350\POTASSIUM CHLORIDE\SODIUM ASCORBATE\SODIUM CHLORIDE\SODIUM SU
     Indication: Product used for unknown indication
     Route: 065
     Dates: start: 20210325, end: 20210325
  76. MIDAZOLAM [Concomitant]
     Active Substance: MIDAZOLAM
     Indication: Product used for unknown indication
     Route: 065
     Dates: start: 20210326, end: 20210326
  77. MEPERIDINE HYDROCHLORIDE [Concomitant]
     Active Substance: MEPERIDINE HYDROCHLORIDE
     Indication: Product used for unknown indication
     Route: 065
     Dates: start: 20210326, end: 20210326
  78. METHYLPREDNISOLONE SODIUM SUCCINATE [Concomitant]
     Active Substance: METHYLPREDNISOLONE SODIUM SUCCINATE
     Indication: Product used for unknown indication
     Route: 065
     Dates: start: 20191118, end: 20210511
  79. CHLORPHENIRAMINE MALEATE [Concomitant]
     Active Substance: CHLORPHENIRAMINE MALEATE
     Indication: Product used for unknown indication
     Route: 065
     Dates: start: 20210512
  80. FRADIOMYCIN SULFATE [Concomitant]
     Indication: Product used for unknown indication
     Route: 065
     Dates: start: 20210110

REACTIONS (2)
  - Traumatic haematoma [Recovering/Resolving]
  - Traumatic haemorrhage [Recovered/Resolved]

NARRATIVE: CASE EVENT DATE: 20210508
